FAERS Safety Report 25729376 (Version 1)
Quarter: 2025Q3

REPORT INFORMATION
  Report Type: Spontaneous
  Country: US (occurrence: US)
  Receive Date: 20250827
  Receipt Date: 20250827
  Transmission Date: 20251021
  Serious: No
  Sender: KARYOPHARM THERAPEUTICS
  Company Number: US-KARYOPHARM-2025KPT100661

PATIENT

DRUGS (4)
  1. SELINEXOR [Suspect]
     Active Substance: SELINEXOR
     Indication: Acute myeloid leukaemia
     Route: 048
     Dates: start: 20250730
  2. BORTEZOMIB [Concomitant]
     Active Substance: BORTEZOMIB
  3. EMEND [Concomitant]
     Active Substance: APREPITANT
  4. ZOLINZA [Concomitant]
     Active Substance: VORINOSTAT

REACTIONS (3)
  - Off label use [Unknown]
  - Off label use [Unknown]
  - No adverse event [Unknown]

NARRATIVE: CASE EVENT DATE: 20250730
